FAERS Safety Report 8076719-0 (Version None)
Quarter: 2012Q1

REPORT INFORMATION
  Report Type: 
  Country: None (occurrence: None)
  Receive Date: 20120127
  Receipt Date: 20120124
  Transmission Date: 20120608
  Serious: Yes (Death, Other)
  Sender: FDA-Public Use
  Company Number: CHPA2012CA001962

PATIENT
  Sex: Male

DRUGS (1)
  1. BUCKLEY'S WHITE RUB [Suspect]
     Indication: NASOPHARYNGITIS
     Dosage: 1 SCOOP, PRN
     Route: 048

REACTIONS (4)
  - DEATH [None]
  - LIMB INJURY [None]
  - INCORRECT ROUTE OF DRUG ADMINISTRATION [None]
  - POOR PERIPHERAL CIRCULATION [None]
